FAERS Safety Report 5681929-3 (Version None)
Quarter: 2008Q1

REPORT INFORMATION
  Report Type: 
  Country: None (occurrence: None)
  Receive Date: 20080327
  Receipt Date: 20070325
  Transmission Date: 20080703
  Serious: No
  Sender: FDA-Public Use
  Company Number: US-BAYER-US-2007-011033

PATIENT
  Age: 47 Year
  Sex: Female
  Weight: 70 kg

DRUGS (4)
  1. MIRENA [Suspect]
     Indication: DYSMENORRHOEA
     Route: 015
     Dates: start: 20070323, end: 20070325
  2. ALBUTEROL [Concomitant]
  3. SINGULAIR [Concomitant]
  4. AZMACORT [Concomitant]

REACTIONS (1)
  - INTRA-UTERINE CONTRACEPTIVE DEVICE EXPELLED [None]
